FAERS Safety Report 8443905-7 (Version None)
Quarter: 2012Q2

REPORT INFORMATION
  Report Type: 
  Country: None (occurrence: None)
  Receive Date: 20120618
  Receipt Date: 20120605
  Transmission Date: 20120825
  Serious: Yes (Hospitalization, Other)
  Sender: FDA-Public Use
  Company Number: US-BAYER-2012-055485

PATIENT
  Age: 37 Year
  Sex: Female
  Weight: 106.58 kg

DRUGS (22)
  1. YAZ [Suspect]
     Indication: CONTRACEPTION
  2. ZOLPIDEM [Concomitant]
     Indication: SLEEP DISORDER THERAPY
     Dosage: 10 MG, UNK
     Dates: start: 20100406
  3. PERCOCET [Concomitant]
     Indication: PAIN
     Dosage: 5-325 MG EVERY 4 HOURS AS NEEDED
     Route: 048
     Dates: start: 20100414
  4. MOTRIN [Concomitant]
     Indication: PAIN
     Dosage: 800 MG, EVERY 8 HOURS AS NEEDED.
     Route: 048
  5. HERBAL PREPARATION [Concomitant]
  6. VALIUM [Concomitant]
     Dosage: 5 MG, UNK
     Route: 042
  7. YAZ [Suspect]
     Indication: ACNE
     Dosage: UNK
     Dates: start: 20080718, end: 20100428
  8. VICODIN [Concomitant]
     Dosage: 5-500 MG, 1 TABLET EVERY SIX HOURS
  9. NORCO [Concomitant]
     Indication: PAIN
     Dosage: 10-325 EVERY 6 HOURS AS NEEDED
     Route: 048
  10. METFORMIN HCL [Concomitant]
     Dosage: 500 MG 1 TABLET 2 TIMES A DAY
  11. CARAFATE [Concomitant]
  12. SPIRONOLACTONE [Concomitant]
     Indication: ACNE
     Dosage: 100 MG, BID
     Route: 048
     Dates: start: 20030101
  13. MULTI-VITAMIN [Concomitant]
     Dosage: 1 DAILY
  14. PROTONIX [Concomitant]
  15. PERCOCET [Concomitant]
     Dosage: UNK
     Route: 048
     Dates: start: 20100420
  16. TRIMETHOBENZAMIDE HCL [Concomitant]
     Dosage: 300 MG, UNK
     Dates: start: 20100308
  17. SKELAXIN [Concomitant]
     Indication: HYPOTONIA
  18. TRAMADOL HCL [Concomitant]
     Dosage: 50 MG, UNK
     Dates: start: 20100107
  19. ZOLPIDEM [Concomitant]
     Dosage: UNK
     Dates: start: 20100216, end: 20100406
  20. IBUPROFEN [Concomitant]
     Dosage: UNK UNK, PRN
     Dates: start: 20100414
  21. METHYLPREDNISOLONE [Concomitant]
     Dosage: 4 MG, UNK
     Dates: start: 20100118
  22. BENZACLIN [Concomitant]
     Dosage: APPLY TO AFFECTED AREA 2 TIMES DAILY
     Route: 061

REACTIONS (9)
  - PAIN [None]
  - DEEP VEIN THROMBOSIS [None]
  - ABDOMINAL PAIN [None]
  - HEADACHE [None]
  - MUSCULOSKELETAL PAIN [None]
  - PAIN IN EXTREMITY [None]
  - NECK PAIN [None]
  - INJURY [None]
  - INTRACRANIAL VENOUS SINUS THROMBOSIS [None]
